FAERS Safety Report 6766144-4 (Version None)
Quarter: 2010Q2

REPORT INFORMATION
  Report Type: 
  Country: None (occurrence: None)
  Receive Date: 20100609
  Receipt Date: 20100529
  Transmission Date: 20101027
  Serious: Yes (Other)
  Sender: FDA-Public Use
  Company Number: 2010AP001129

PATIENT
  Age: 29 Year
  Sex: Female

DRUGS (2)
  1. SERTRALINE HCL [Suspect]
     Indication: DEPRESSIVE SYMPTOM
     Dosage: 50 MG
  2. VENLAFAXINE HCL [Suspect]
     Dosage: 75 MG

REACTIONS (3)
  - CONVERSION DISORDER [None]
  - DYSTONIA [None]
  - TREMOR [None]
